FAERS Safety Report 4915093-2 (Version None)
Quarter: 2006Q1

REPORT INFORMATION
  Report Type: 
  Country: None (occurrence: None)
  Receive Date: 20060215
  Receipt Date: 20060215
  Transmission Date: 20060701
  Serious: Yes (Hospitalization)
  Sender: FDA-Public Use
  Company Number: None

PATIENT
  Age: 74 Year
  Sex: Male

DRUGS (2)
  1. FUROSEMIDE [Suspect]
     Indication: CARDIAC FAILURE CONGESTIVE
     Dosage: 80MG BID IV BOLUS
     Route: 040
     Dates: start: 20050929, end: 20051004
  2. LEVOFLOXACIN [Suspect]
     Indication: COLECTOMY
     Dosage: 500MG DAILY IV BOLUS
     Route: 040
     Dates: start: 20050930, end: 20051005

REACTIONS (7)
  - COLONIC PSEUDO-OBSTRUCTION [None]
  - DERMATITIS BULLOUS [None]
  - NEPHRITIS INTERSTITIAL [None]
  - PURPURA [None]
  - RASH MACULAR [None]
  - RENAL FAILURE ACUTE [None]
  - THROMBOCYTOPENIA [None]
